FAERS Safety Report 7052644-9 (Version None)
Quarter: 2010Q4

REPORT INFORMATION
  Report Type: 
  Country: None (occurrence: None)
  Receive Date: 20101019
  Receipt Date: 20101011
  Transmission Date: 20110411
  Serious: Yes (Hospitalization, Other)
  Sender: FDA-Public Use
  Company Number: US-PFIZER INC-2008025531

PATIENT
  Sex: Female
  Weight: 95.7 kg

DRUGS (8)
  1. CHANTIX [Suspect]
     Indication: SMOKING CESSATION THERAPY
     Dosage: 1 MG, 2X/DAY
     Route: 048
     Dates: start: 20050101, end: 20080316
  2. CHANTIX [Suspect]
     Dosage: UNK
     Route: 048
  3. LEVOTHYROXINE [Concomitant]
  4. HYDROCHLOROTHIAZIDE [Concomitant]
  5. ALLEGRA [Concomitant]
     Dosage: 180 MG, DAILY
  6. PAXIL CR [Concomitant]
     Dosage: 50 MG, DAILY
  7. RELPAX [Concomitant]
     Indication: MIGRAINE
     Dosage: UNK, AS NEEDED
  8. RELPAX [Concomitant]
     Indication: HEADACHE

REACTIONS (7)
  - BLOOD GLUCOSE DECREASED [None]
  - BLOOD GLUCOSE INCREASED [None]
  - HYPERTENSION [None]
  - HYPOTENSION [None]
  - PANIC ATTACK [None]
  - STAPHYLOCOCCAL INFECTION [None]
  - SUICIDAL IDEATION [None]
